FAERS Safety Report 7053652-4 (Version None)
Quarter: 2010Q4

REPORT INFORMATION
  Report Type: 
  Country: None (occurrence: None)
  Receive Date: 20101020
  Receipt Date: 20101012
  Transmission Date: 20110411
  Serious: Yes (Life-Threatening, Hospitalization)
  Sender: FDA-Public Use
  Company Number: JP-AMGEN INC.-QUU439319

PATIENT

DRUGS (9)
  1. ENBREL [Suspect]
     Indication: STILL'S DISEASE ADULT ONSET
     Dosage: 25 MG, QWK
     Route: 058
     Dates: start: 20100522, end: 20100605
  2. ENBREL [Suspect]
     Dosage: 50 MG, QWK
     Route: 058
     Dates: start: 20100612, end: 20100708
  3. ISONIAZID [Suspect]
     Indication: ANTIBIOTIC PROPHYLAXIS
     Dosage: 300 MG, QD
     Route: 048
     Dates: start: 20100522, end: 20100801
  4. METHYLPREDNISOLONE [Suspect]
     Indication: STILL'S DISEASE ADULT ONSET
     Dosage: UNK UNK, UNK
  5. METHOTREXATE [Concomitant]
     Indication: STILL'S DISEASE ADULT ONSET
     Dosage: 5 MG, QWK
     Route: 048
     Dates: start: 20060701, end: 20070301
  6. METHOTREXATE [Concomitant]
     Dosage: 20 MG, QWK
     Route: 048
     Dates: start: 20070301, end: 20100710
  7. METHOTREXATE [Concomitant]
     Dosage: 5 MG, QWK
     Route: 048
     Dates: start: 20100824
  8. METHOTREXATE [Concomitant]
     Dosage: UNK UNK, UNK
     Route: 048
  9. SOL-MELCORT [Concomitant]
     Indication: ARTHRITIS
     Dosage: 40 MG, QD
     Route: 042
     Dates: start: 20100424, end: 20100424

REACTIONS (4)
  - CALCULUS URINARY [None]
  - ERYTHEMA MULTIFORME [None]
  - HEPATITIS ACUTE [None]
  - SPINAL FRACTURE [None]
